FAERS Safety Report 5281377-4 (Version None)
Quarter: 2007Q1

REPORT INFORMATION
  Report Type: 
  Country: None (occurrence: None)
  Receive Date: 20070330
  Receipt Date: 20070329
  Transmission Date: 20070707
  Serious: Yes (Hospitalization)
  Sender: FDA-Public Use
  Company Number: FR-JNJFOC-20070304377

PATIENT
  Age: 53 Year
  Sex: Female

DRUGS (8)
  1. OFLOCET [Suspect]
     Indication: BRONCHITIS
     Route: 048
     Dates: start: 20070105, end: 20070107
  2. VELCADE [Suspect]
     Route: 042
  3. VELCADE [Suspect]
     Route: 042
  4. VELCADE [Suspect]
     Indication: MULTIPLE MYELOMA
     Route: 042
  5. AUGMENTIN '125' [Suspect]
     Indication: BRONCHITIS
     Route: 048
     Dates: start: 20070105, end: 20070107
  6. THALIDOMIDE [Suspect]
     Indication: MULTIPLE MYELOMA
     Route: 048
  7. ORELOX [Suspect]
     Indication: BRONCHITIS
     Route: 048
     Dates: start: 20070107, end: 20070112
  8. DEXAMETHASONE [Concomitant]
     Indication: MULTIPLE MYELOMA
     Route: 042

REACTIONS (3)
  - EOSINOPHILIA [None]
  - RASH MACULO-PAPULAR [None]
  - RENAL FAILURE ACUTE [None]
